FAERS Safety Report 7328354 (Version 4)
Quarter: 2013Q1

REPORT INFORMATION
  Report Type: Spontaneous
  Country: US (occurrence: US)
  Receive Date: 20100323
  Receipt Date: 20130315
  Transmission Date: 20140127
  Serious: Yes (Hospitalization)
  Sender: FDA-Public Use
  Company Number: US-BAYER-201017000NA

PATIENT
  Age: 40 Year
  Sex: Female
  Weight: 65.91 kg

DRUGS (16)
  1. YAZ [Suspect]
     Indication: ORAL CONTRACEPTION
     Route: 048
     Dates: start: 200606, end: 200609
  2. YASMIN [Suspect]
     Indication: PRODUCT USED FOR UNKNOWN INDICATION
     Route: 048
     Dates: start: 200605, end: 200609
  3. HEART MEDICATION (NOS) [Concomitant]
  4. ANTITHROMBOTIC AGENTS [Concomitant]
  5. ANTIBIOTICS [Concomitant]
  6. MINOCYCLINE [Concomitant]
  7. PHENERGAN [Concomitant]
  8. LEXAPRO [Concomitant]
  9. XANAX [Concomitant]
  10. PROMETHEGAN [Concomitant]
     Dosage: 25 MG, UNK
     Route: 054
  11. VITAMIN C [ASCORBIC ACID] [Concomitant]
     Indication: IMMUNE ENHANCEMENT THERAPY
     Dosage: 500 MG, DAILY
     Dates: start: 20060901
  12. CALCIUM [CALCIUM] [Concomitant]
     Dosage: 500 MG, DAILY
     Dates: start: 20060901
  13. VITAMIN E [TOCOPHEROL] [Concomitant]
  14. FLEXERIL [Concomitant]
  15. POTASSIUM [POTASSIUM] [Concomitant]
  16. PERCOCET [OXYCODONE HYDROCHLORIDE,PARACETAMOL] [Concomitant]
     Indication: PAIN
     Dosage: UNK UNK, PRN

REACTIONS (3)
  - Deep vein thrombosis [None]
  - Local swelling [None]
  - Pain in extremity [None]
